FAERS Safety Report 5701548-X (Version None)
Quarter: 2008Q2

REPORT INFORMATION
  Report Type: 
  Country: None (occurrence: None)
  Receive Date: 20080408
  Receipt Date: 20080401
  Transmission Date: 20081010
  Serious: Yes (Hospitalization)
  Sender: FDA-Public Use
  Company Number: 18842

PATIENT
  Age: 65 Year
  Sex: Female

DRUGS (12)
  1. VINCRISTINE [Suspect]
     Indication: B-CELL LYMPHOMA
     Dates: start: 20080301
  2. VINCRISTINE [Suspect]
     Indication: B-CELL LYMPHOMA
     Dosage: 2 MG Q21DAYS IV
     Route: 042
  3. CYTOXAN [Suspect]
     Indication: B-CELL LYMPHOMA
     Dates: start: 20080301
  4. DOXORUBICIN HCL [Suspect]
     Indication: B-CELL LYMPHOMA
     Dates: start: 20080301
  5. PREDNISONE [Suspect]
     Indication: B-CELL LYMPHOMA
     Dates: start: 20080301
  6. KLOR-CON [Suspect]
     Indication: BLOOD POTASSIUM DECREASED
     Dosage: 20 MEQ QD PO
     Route: 048
     Dates: start: 20080208, end: 20080306
  7. KLOR-CON [Suspect]
     Indication: BLOOD POTASSIUM DECREASED
     Dosage: 40 MEQ QD PO
     Route: 048
     Dates: start: 20080307, end: 20080312
  8. DAPSONE [Concomitant]
  9. VALSARTAN [Concomitant]
  10. FLUOXETINE [Concomitant]
  11. HYDROCHLOROTHIAZIDE [Concomitant]
  12. ATORVASTATIN [Concomitant]

REACTIONS (4)
  - BLOOD POTASSIUM DECREASED [None]
  - CONDITION AGGRAVATED [None]
  - DIARRHOEA [None]
  - GASTRIC ULCER HAEMORRHAGE [None]
